FAERS Safety Report 5258696-0 (Version None)
Quarter: 2007Q1

REPORT INFORMATION
  Report Type: 
  Country: None (occurrence: None)
  Receive Date: 20070305
  Receipt Date: 20070219
  Transmission Date: 20070707
  Serious: Yes (Death, Life-Threatening, Hospitalization)
  Sender: FDA-Public Use
  Company Number: E2090-00172-SPO-JP

PATIENT
  Age: 64 Year
  Sex: Female

DRUGS (4)
  1. EXCEGRAN (ZONISAMIDE) [Suspect]
     Indication: PROPHYLAXIS
     Dosage: 200 MG, 1IN 1 D, ORAL
     Route: 048
     Dates: start: 20061019, end: 20061201
  2. BUP-4 (PROPIVERINE HYDROCHLORIDE) [Concomitant]
  3. VOLTAREN [Concomitant]
  4. CARBENIN (GALENIC /PANIPENEM/BETAMIPRON/) [Concomitant]

REACTIONS (8)
  - ANOREXIA [None]
  - CONVULSION [None]
  - DRUG HYPERSENSITIVITY [None]
  - IMMUNODEFICIENCY [None]
  - PNEUMOCYSTIS JIROVECI PNEUMONIA [None]
  - PNEUMONIA CYTOMEGALOVIRAL [None]
  - STAPHYLOCOCCAL SEPSIS [None]
  - STEVENS-JOHNSON SYNDROME [None]
